FAERS Safety Report 9350248 (Version 3)
Quarter: 2013Q3

REPORT INFORMATION
  Report Type: Report from Study
  Country: CA (occurrence: CA)
  Receive Date: 20130617
  Receipt Date: 20130917
  Transmission Date: 20140515
  Serious: Yes (Life-Threatening, Hospitalization)
  Sender: FDA-Public Use
  Company Number: CA-ROCHE-1142488

PATIENT
  Age: 24 Year
  Sex: Female
  Weight: 100 kg

DRUGS (8)
  1. ACTEMRA [Suspect]
     Indication: JUVENILE IDIOPATHIC ARTHRITIS
     Route: 042
     Dates: start: 20110825
  2. ACTEMRA [Suspect]
     Route: 065
     Dates: start: 20110930
  3. ACTEMRA [Suspect]
     Route: 065
     Dates: start: 20121031
  4. ACTEMRA [Suspect]
     Route: 065
     Dates: start: 201107
  5. ACTEMRA [Suspect]
     Route: 065
     Dates: start: 20130424
  6. PREVACID [Concomitant]
  7. INDOCID [Concomitant]
     Indication: RHEUMATOID ARTHRITIS
     Route: 048
  8. PREDNISONE [Concomitant]

REACTIONS (4)
  - Necrotising fasciitis [Recovered/Resolved with Sequelae]
  - Arthropod bite [Unknown]
  - Cellulitis [Unknown]
  - Weight increased [Not Recovered/Not Resolved]
